FAERS Safety Report 20141442 (Version 1)
Quarter: 2021Q4

REPORT INFORMATION
  Report Type: Other
  Country: PH (occurrence: None)
  Receive Date: 20211202
  Receipt Date: 20211202
  Transmission Date: 20220303
  Serious: Yes (Hospitalization)
  Sender: FDA-Public Use
  Company Number: PH-ROCHE-2961303

PATIENT
  Age: 40 Year
  Sex: Female

DRUGS (1)
  1. TRASTUZUMAB [Suspect]
     Active Substance: TRASTUZUMAB
     Indication: Breast cancer
     Route: 065

REACTIONS (8)
  - COVID-19 [Recovered/Resolved]
  - Wound dehiscence [Recovered/Resolved]
  - Pseudomeningocele [Recovered/Resolved]
  - Intracranial pressure increased [Recovered/Resolved]
  - Cerebrospinal fluid leakage [Recovered/Resolved]
  - Brain oedema [Recovered/Resolved]
  - Central nervous system infection [Recovered/Resolved]
  - Brain herniation [Recovered/Resolved]
